FAERS Safety Report 10306297 (Version 2)
Quarter: 2014Q3

REPORT INFORMATION
  Report Type: Spontaneous
  Country: US (occurrence: US)
  Receive Date: 20140715
  Receipt Date: 20140807
  Transmission Date: 20150326
  Serious: Yes (Other)
  Sender: FDA-Public Use
  Company Number: US-BAYER-2014-106195

PATIENT
  Age: 39 Year
  Sex: Female
  Weight: 102.4 kg

DRUGS (3)
  1. CLONAZEPAM. [Concomitant]
     Active Substance: CLONAZEPAM
     Dosage: 0.5 MG, BID
  2. SERZONE [Concomitant]
     Active Substance: NEFAZODONE HYDROCHLORIDE
     Dosage: 150 MG, UNK
  3. YASMIN [Suspect]
     Active Substance: DROSPIRENONE\ETHINYL ESTRADIOL
     Dosage: UNK
     Dates: start: 200207, end: 20030418

REACTIONS (6)
  - Injury [None]
  - Pain [None]
  - Deep vein thrombosis [None]
  - Emotional distress [None]
  - General physical health deterioration [None]
  - Anxiety [None]

NARRATIVE: CASE EVENT DATE: 20030418
